FAERS Safety Report 10293824 (Version 2)
Quarter: 2014Q3

REPORT INFORMATION
  Report Type: Spontaneous
  Country: US (occurrence: US)
  Receive Date: 20140710
  Receipt Date: 20140710
  Transmission Date: 20150326
  Serious: No
  Sender: FDA-Public Use
  Company Number: US-PURDUE-USA-2013-0109030

PATIENT
  Age: 77 Year
  Sex: Female
  Weight: 108.39 kg

DRUGS (1)
  1. BUTRANS [Suspect]
     Active Substance: BUPRENORPHINE
     Indication: OSTEOARTHRITIS
     Dosage: 20 MCG/HR, WEEKLY
     Route: 062
     Dates: start: 20130927

REACTIONS (4)
  - Inadequate analgesia [Recovered/Resolved]
  - Dizziness [Recovered/Resolved]
  - Drug effect increased [Recovered/Resolved]
  - Sedation [Recovered/Resolved]

NARRATIVE: CASE EVENT DATE: 20130927
